FAERS Safety Report 8166996-X (Version None)
Quarter: 2012Q1

REPORT INFORMATION
  Report Type: 
  Country: None (occurrence: None)
  Receive Date: 20120227
  Receipt Date: 20120217
  Transmission Date: 20120608
  Serious: Yes (Hospitalization)
  Sender: FDA-Public Use
  Company Number: AR-ROCHE-1042899

PATIENT
  Sex: Female

DRUGS (2)
  1. LUCENTIS [Suspect]
     Indication: MACULOPATHY
     Dosage: THREE AMPOULES
     Route: 050
     Dates: start: 20110601
  2. CALCIUM [Concomitant]

REACTIONS (4)
  - HIP FRACTURE [None]
  - VISUAL IMPAIRMENT [None]
  - FALL [None]
  - DRUG EFFECT DECREASED [None]
